FAERS Safety Report 5384999-5 (Version None)
Quarter: 2007Q3

REPORT INFORMATION
  Report Type: 
  Country: None (occurrence: None)
  Receive Date: 20070712
  Receipt Date: 20070703
  Transmission Date: 20080115
  Serious: Yes (Other)
  Sender: FDA-Public Use
  Company Number: PHEH2007US05853

PATIENT
  Age: 44 Year
  Sex: Female

DRUGS (10)
  1. ZELNORM [Suspect]
     Indication: CONSTIPATION
     Dosage: 6 MG, BID
     Route: 048
     Dates: start: 20070101, end: 20070420
  2. ZELNORM [Suspect]
     Dosage: 6 MG, BID
     Route: 048
     Dates: start: 20041206
  3. ZOLOFT [Concomitant]
     Indication: DEPRESSION
     Dosage: 200 MG, UNK
     Route: 048
  4. CLONAZEPAM [Concomitant]
     Indication: ANXIETY
     Dosage: 0.5 MG, 4 TABLETS QD
     Route: 048
  5. LITHIUM CARBONATE [Concomitant]
     Indication: AFFECTIVE DISORDER
     Dosage: UNK, QHS
     Route: 048
  6. TRILEPTAL [Concomitant]
     Indication: AFFECTIVE DISORDER
     Dosage: 600 MG, TID
     Route: 048
  7. PRILOSEC [Concomitant]
     Indication: GASTROOESOPHAGEAL REFLUX DISEASE
     Dosage: UNK, BID
     Route: 048
  8. PREVACID [Concomitant]
     Indication: GASTROOESOPHAGEAL REFLUX DISEASE
     Dosage: 30 MG, QD
     Route: 048
  9. CHARCOAL PREPARATIONS [Concomitant]
  10. METOCLOPRAMIDE [Concomitant]
     Dosage: 20 MG, QHS
     Route: 048

REACTIONS (17)
  - ABDOMINAL PAIN UPPER [None]
  - BILIARY DYSKINESIA [None]
  - CHOLELITHIASIS [None]
  - DRUG INEFFECTIVE [None]
  - ELECTROCARDIOGRAM ABNORMAL [None]
  - ERUCTATION [None]
  - GALLBLADDER OPERATION [None]
  - GASTROOESOPHAGEAL REFLUX DISEASE [None]
  - HEPATOBILIARY SCAN [None]
  - HYPERTENSION [None]
  - LIPOSUCTION [None]
  - MELAENA [None]
  - NAUSEA [None]
  - PALPITATIONS [None]
  - STRESS [None]
  - VOMITING [None]
  - WEIGHT INCREASED [None]
